FAERS Safety Report 11414683 (Version 5)
Quarter: 2015Q3

REPORT INFORMATION
  Report Type: Spontaneous
  Country: US (occurrence: US)
  Receive Date: 20150825
  Receipt Date: 20150929
  Transmission Date: 20151125
  Serious: No
  Sender: FDA-Public Use
  Company Number: PHEH2013US010991

PATIENT
  Sex: Female

DRUGS (4)
  1. EXELON PATCH [Suspect]
     Active Substance: RIVASTIGMINE
     Dosage: 13.3 MG, QD (27 MG RIVASTIGMINE BASE)(PATCH SIZE 15 CM2)
     Route: 062
  2. EXELON PATCH [Suspect]
     Active Substance: RIVASTIGMINE
     Dosage: 9.5 MG (18 MG RIVASTIGMINE BASE)(PATCH SIZE 10 CM2)
     Route: 062
  3. EXELON PATCH [Suspect]
     Active Substance: RIVASTIGMINE
     Dosage: 9.5 MG, QD (18 MG RIVASTIGMINE BASE)(PATCH SIZE 10 CM2)
     Route: 062
  4. EXELON PATCH [Suspect]
     Active Substance: RIVASTIGMINE
     Indication: DEMENTIA ALZHEIMER^S TYPE
     Dosage: 4.6 MG, DAILY(9 MG RIVASTIGMINE BASE) (PATCH SIZE 5 CM2)
     Route: 062

REACTIONS (7)
  - Dizziness [Unknown]
  - Drug intolerance [Unknown]
  - Malaise [Unknown]
  - Blood pressure decreased [Unknown]
  - Headache [Unknown]
  - Gait disturbance [Unknown]
  - Product adhesion issue [Unknown]
